FAERS Safety Report 26056290 (Version 1)
Quarter: 2025Q4

REPORT INFORMATION
  Report Type: Report from Study
  Country: PK (occurrence: PK)
  Receive Date: 20251118
  Receipt Date: 20251118
  Transmission Date: 20260117
  Serious: Yes (Other)
  Sender: ROCHE
  Company Number: PK-ROCHE-10000429994

PATIENT
  Age: 58 Year
  Sex: Male

DRUGS (1)
  1. AVASTIN [Suspect]
     Active Substance: BEVACIZUMAB
     Indication: Glioblastoma
     Route: 042
     Dates: start: 20250617

REACTIONS (5)
  - General physical health deterioration [Not Recovered/Not Resolved]
  - Blood potassium abnormal [Unknown]
  - Asthenia [Unknown]
  - Diarrhoea [Unknown]
  - Blood creatinine abnormal [Unknown]

NARRATIVE: CASE EVENT DATE: 20250901
